FAERS Safety Report 24220188 (Version 1)
Quarter: 2024Q3

REPORT INFORMATION
  Report Type: Report from Study
  Country: US (occurrence: US)
  Receive Date: 20240817
  Receipt Date: 20240817
  Transmission Date: 20241017
  Serious: Yes (Hospitalization)
  Sender: ACCORD
  Company Number: US-Accord-441156

PATIENT
  Age: 72 Year
  Sex: Male

DRUGS (1)
  1. CLOZAPINE [Suspect]
     Active Substance: CLOZAPINE
     Indication: Schizophrenia
     Dosage: DAILY AT BEDTIME
     Route: 048

REACTIONS (3)
  - Subdural haematoma [Unknown]
  - Mental status changes [Unknown]
  - Pneumocephalus [Unknown]

NARRATIVE: CASE EVENT DATE: 20240101
